FAERS Safety Report 19580619 (Version 5)
Quarter: 2022Q1

REPORT INFORMATION
  Report Type: Spontaneous
  Country: JP (occurrence: JP)
  Receive Date: 20210719
  Receipt Date: 20220111
  Transmission Date: 20220423
  Serious: Yes (Other)
  Sender: FDA-Public Use
  Company Number: JP-MSD-M2021-13473

PATIENT
  Age: 80 Year
  Sex: Female

DRUGS (5)
  1. KEYTRUDA [Suspect]
     Active Substance: PEMBROLIZUMAB
     Indication: Tongue neoplasm malignant stage unspecified
     Dosage: 200 MILLIGRAM, Q3W
     Route: 041
     Dates: start: 20210510, end: 202108
  2. KEYTRUDA [Suspect]
     Active Substance: PEMBROLIZUMAB
     Dosage: UNK
     Route: 041
     Dates: start: 20210823, end: 2021
  3. CISPLATIN [Suspect]
     Active Substance: CISPLATIN
     Indication: Tongue neoplasm malignant stage unspecified
     Dosage: UNK
     Route: 065
     Dates: start: 20210510, end: 2021
  4. FLUOROURACIL [Suspect]
     Active Substance: FLUOROURACIL
     Indication: Tongue neoplasm malignant stage unspecified
     Dosage: UNK
     Route: 065
     Dates: start: 20210510, end: 2021
  5. CETUXIMAB [Suspect]
     Active Substance: CETUXIMAB
     Dosage: UNK
     Route: 065
     Dates: start: 202110

REACTIONS (13)
  - Myelosuppression [Unknown]
  - Malignant neoplasm progression [Unknown]
  - White blood cell count decreased [Recovered/Resolved]
  - Decreased appetite [Unknown]
  - Nausea [Unknown]
  - Hiccups [Unknown]
  - Alopecia [Unknown]
  - Hypogeusia [Unknown]
  - Constipation [Unknown]
  - Stomatitis [Recovering/Resolving]
  - Stomatitis [Unknown]
  - Stomatitis [Recovering/Resolving]
  - Eczema [Unknown]

NARRATIVE: CASE EVENT DATE: 20210101
